FAERS Safety Report 6104941-9 (Version None)
Quarter: 2009Q1

REPORT INFORMATION
  Report Type: 
  Country: None (occurrence: None)
  Receive Date: 20090306
  Receipt Date: 20090225
  Transmission Date: 20090719
  Serious: Yes (Other)
  Sender: FDA-Public Use
  Company Number: CL-ASTRAZENECA-2009AP01461

PATIENT
  Age: 6 Year
  Sex: Male

DRUGS (1)
  1. SYMBICORT [Suspect]
     Indication: CEREBROVASCULAR ACCIDENT
     Route: 055
     Dates: start: 20081001, end: 20090101

REACTIONS (1)
  - DRUG ERUPTION [None]
